FAERS Safety Report 7232032-2 (Version None)
Quarter: 2011Q1

REPORT INFORMATION
  Report Type: 
  Country: None (occurrence: None)
  Receive Date: 20110118
  Receipt Date: 20051020
  Transmission Date: 20110831
  Serious: Yes (Other)
  Sender: FDA-Public Use
  Company Number: PHHY2005MX02223

PATIENT
  Age: 8 Year
  Sex: Male

DRUGS (2)
  1. TEGRETOL [Suspect]
     Indication: PSYCHOMOTOR HYPERACTIVITY
     Dosage: 100 MG, QD
     Dates: start: 20050527
  2. TEGRETOL [Suspect]
     Dosage: 100 MG, QD
     Route: 048

REACTIONS (1)
  - MENTAL IMPAIRMENT [None]
